FAERS Safety Report 13358402 (Version 1)
Quarter: 2017Q1

REPORT INFORMATION
  Report Type: Spontaneous
  Country: US (occurrence: US)
  Receive Date: 20170321
  Receipt Date: 20170321
  Transmission Date: 20170429
  Serious: No
  Sender: FDA-Public Use
  Company Number: None

PATIENT
  Age: 33 Year
  Sex: Female
  Weight: 53.12 kg

DRUGS (3)
  1. MIRENA [Suspect]
     Active Substance: LEVONORGESTREL
     Indication: CONTRACEPTION
     Dosage: 11 1 VAGINAL
     Route: 067
  2. BIOTIN [Concomitant]
     Active Substance: BIOTIN
  3. ALBUTEROL INHALER [Concomitant]
     Active Substance: ALBUTEROL

REACTIONS (8)
  - Palpitations [None]
  - Acne cystic [None]
  - Alopecia [None]
  - Panic attack [None]
  - Weight increased [None]
  - Mood swings [None]
  - Loss of libido [None]
  - Depression [None]
